FAERS Safety Report 6665390-8 (Version None)
Quarter: 2010Q2

REPORT INFORMATION
  Report Type: 
  Country: None (occurrence: None)
  Receive Date: 20100402
  Receipt Date: 20100324
  Transmission Date: 20101027
  Serious: Yes (Other)
  Sender: FDA-Public Use
  Company Number: KR-PFIZER INC-2010037357

PATIENT
  Sex: Female

DRUGS (2)
  1. DITRUSITOL [Suspect]
     Dosage: 2 MG, 1X/DAY BEFORE SLEEP
     Route: 048
  2. CIPROFLOXACIN HYDROCHLORIDE [Concomitant]
     Dosage: ONE AND HALF A TABLET, 2X/DAY
     Route: 048

REACTIONS (1)
  - URINE COLOUR ABNORMAL [None]
